FAERS Safety Report 6311162-3 (Version None)
Quarter: 2009Q3

REPORT INFORMATION
  Report Type: 
  Country: None (occurrence: None)
  Receive Date: 20090817
  Receipt Date: 20090803
  Transmission Date: 20100115
  Serious: Yes (Other)
  Sender: FDA-Public Use
  Company Number: TR-ROCHE-647348

PATIENT
  Age: 76 Year
  Sex: Female

DRUGS (1)
  1. INTERFERON ALFA-2A [Suspect]
     Indication: KAPOSI'S SARCOMA
     Route: 058

REACTIONS (1)
  - LINEAR IGA DISEASE [None]
